FAERS Safety Report 19117827 (Version 2)
Quarter: 2021Q2

REPORT INFORMATION
  Report Type: Report from Study
  Country: EG (occurrence: EG)
  Receive Date: 20210409
  Receipt Date: 20210504
  Transmission Date: 20210717
  Serious: Yes (Death)
  Sender: FDA-Public Use
  Company Number: EG-REGENERON PHARMACEUTICALS, INC.-2021-40604

PATIENT

DRUGS (2)
  1. EYLEA [Suspect]
     Active Substance: AFLIBERCEPT
     Indication: RETINAL VEIN OCCLUSION
     Dosage: UNK
     Dates: start: 20200909, end: 20210322
  2. EYLEA [Suspect]
     Active Substance: AFLIBERCEPT
     Dosage: 1 DF, ONCE, LAST DOSE
     Dates: start: 20210203, end: 20210203

REACTIONS (2)
  - COVID-19 [Fatal]
  - Hypotension [Fatal]
